FAERS Safety Report 10754824 (Version 1)
Quarter: 2015Q1

REPORT INFORMATION
  Report Type: Spontaneous
  Country: BR (occurrence: BR)
  Receive Date: 20150202
  Receipt Date: 20150202
  Transmission Date: 20150721
  Serious: Yes (Other)
  Sender: FDA-Public Use
  Company Number: BR-SA-2015SA010604

PATIENT
  Sex: Female

DRUGS (3)
  1. NOVORAPID [Concomitant]
     Active Substance: INSULIN ASPART
     Indication: DIABETES MELLITUS
  2. LANTUS [Suspect]
     Active Substance: INSULIN GLARGINE
     Indication: DIABETES MELLITUS
     Route: 065
  3. INSULIN PEN NOS [Concomitant]
     Active Substance: INSULIN NOS
     Indication: DEVICE THERAPY

REACTIONS (1)
  - Dementia Alzheimer^s type [Unknown]
